FAERS Safety Report 21372034 (Version 2)
Quarter: 2022Q4

REPORT INFORMATION
  Report Type: Report from Study
  Country: DE (occurrence: DE)
  Receive Date: 20220923
  Receipt Date: 20221012
  Transmission Date: 20230112
  Serious: Yes (Hospitalization)
  Sender: FDA-Public Use
  Company Number: DE-BoehringerIngelheim-2022-BI-171236

PATIENT
  Age: 61 Year
  Sex: Male
  Weight: 67.4 kg

DRUGS (2)
  1. SPESOLIMAB [Suspect]
     Active Substance: SPESOLIMAB
     Indication: Hidradenitis
     Route: 058
     Dates: start: 20211222
  2. SPESOLIMAB [Suspect]
     Active Substance: SPESOLIMAB
     Route: 058
     Dates: start: 20220317, end: 20220428

REACTIONS (2)
  - Hidradenitis [Recovered/Resolved]
  - Hidradenitis [Recovered/Resolved]

NARRATIVE: CASE EVENT DATE: 20220512
